FAERS Safety Report 8915200 (Version 1)
Quarter: 2012Q4

REPORT INFORMATION
  Report Type: 
  Country: IT (occurrence: IT)
  Receive Date: 20121119
  Receipt Date: 20121119
  Transmission Date: 20130627
  Serious: Yes (Death, Other)
  Sender: FDA-Public Use
  Company Number: IT-ROCHE-1155447

PATIENT

DRUGS (5)
  1. BEVACIZUMAB [Suspect]
     Indication: COLORECTAL CANCER METASTATIC
     Route: 042
  2. FOLINIC ACID [Suspect]
     Indication: COLORECTAL CANCER METASTATIC
     Route: 065
  3. FLUOROURACIL [Suspect]
     Indication: COLORECTAL CANCER METASTATIC
     Route: 040
  4. FLUOROURACIL [Suspect]
     Route: 065
  5. IRINOTECAN [Suspect]
     Indication: COLORECTAL CANCER METASTATIC
     Route: 065

REACTIONS (24)
  - Diarrhoea [Fatal]
  - Myocardial infarction [Fatal]
  - Neutropenic sepsis [Fatal]
  - Pulmonary haemorrhage [Fatal]
  - Dehydration [Fatal]
  - Cardiac arrest [Fatal]
  - Fatigue [Unknown]
  - Epistaxis [Unknown]
  - Pulmonary embolism [Unknown]
  - Gastrointestinal perforation [Unknown]
  - Hypertension [Unknown]
  - Proteinuria [Unknown]
  - Fistula [Unknown]
  - Impaired healing [Unknown]
  - Embolism venous [Unknown]
  - Cerebral ischaemia [Unknown]
  - Anaemia [Unknown]
  - Neutropenia [Unknown]
  - Thrombocytopenia [Unknown]
  - Mucosal inflammation [Unknown]
  - Haemorrhage [Unknown]
  - Nausea [Unknown]
  - Vomiting [Unknown]
  - Abdominal abscess [Unknown]
